FAERS Safety Report 6877065-0 (Version None)
Quarter: 2010Q3

REPORT INFORMATION
  Report Type: 
  Country: None (occurrence: None)
  Receive Date: 20100727
  Receipt Date: 20100727
  Transmission Date: 20110219
  Serious: Yes (Other)
  Sender: FDA-Public Use
  Company Number: None

PATIENT
  Age: 43 Year
  Sex: Female
  Weight: 71.2147 kg

DRUGS (2)
  1. LEVAQUIN [Suspect]
     Indication: FOOD POISONING
     Dosage: 500MG ONCE IV DRIP
     Route: 041
     Dates: start: 20100717, end: 20100717
  2. LEVAQUIN [Suspect]
     Indication: WHITE BLOOD CELL COUNT INCREASED
     Dosage: 500MG ONCE IV DRIP
     Route: 041
     Dates: start: 20100717, end: 20100717

REACTIONS (19)
  - AFFECT LABILITY [None]
  - ARTHRALGIA [None]
  - ASTHENIA [None]
  - BACK PAIN [None]
  - BURNING SENSATION [None]
  - CHILLS [None]
  - DISTURBANCE IN ATTENTION [None]
  - DRUG HYPERSENSITIVITY [None]
  - FATIGUE [None]
  - HEADACHE [None]
  - HYPOAESTHESIA [None]
  - INSOMNIA [None]
  - MUSCLE SPASMS [None]
  - MUSCLE TWITCHING [None]
  - MYOCLONUS [None]
  - NAUSEA [None]
  - PALPITATIONS [None]
  - SENSATION OF HEAVINESS [None]
  - WEIGHT DECREASED [None]
